FAERS Safety Report 26146724 (Version 1)
Quarter: 2025Q4

REPORT INFORMATION
  Report Type: Report from Study
  Country: US (occurrence: US)
  Receive Date: 20251211
  Receipt Date: 20251211
  Transmission Date: 20260118
  Serious: Yes (Hospitalization, Other)
  Sender: ABBVIE
  Company Number: US-ABBVIE-6582326

PATIENT
  Sex: Female

DRUGS (1)
  1. SYNTHROID [Suspect]
     Active Substance: LEVOTHYROXINE SODIUM
     Indication: Product used for unknown indication
     Route: 048

REACTIONS (14)
  - Cellulitis [Unknown]
  - Wheezing [Unknown]
  - Hypoacusis [Unknown]
  - Rash [Unknown]
  - Paraesthesia [Unknown]
  - Feeling jittery [Unknown]
  - Scab [Unknown]
  - Lethargy [Unknown]
  - Haemorrhage [Unknown]
  - Pollakiuria [Unknown]
  - Nasopharyngitis [Unknown]
  - Abdominal operation [Unknown]
  - Diabetes mellitus [Unknown]
  - Dyspnoea [Unknown]
